FAERS Safety Report 5392991-X (Version None)
Quarter: 2007Q3

REPORT INFORMATION
  Report Type: 
  Country: None (occurrence: None)
  Receive Date: 20070719
  Receipt Date: 20070705
  Transmission Date: 20080115
  Serious: Yes (Death)
  Sender: FDA-Public Use
  Company Number: 013044

PATIENT
  Age: 52 Year
  Sex: Male

DRUGS (4)
  1. PRIALT [Suspect]
     Indication: DRUG USE FOR UNKNOWN INDICATION
     Dosage: ONCE/HOUR, INTRATHECAL
     Route: 037
  2. BACLOFEN [Concomitant]
  3. CLONIDINE [Concomitant]
  4. DILAUDID HYDROBROMORPHONE HYDROCHLORIDE) [Concomitant]

REACTIONS (1)
  - ILL-DEFINED DISORDER [None]
